FAERS Safety Report 4455608-4 (Version None)
Quarter: 2004Q3

REPORT INFORMATION
  Report Type: 
  Country: None (occurrence: None)
  Receive Date: 20040922
  Receipt Date: 20040910
  Transmission Date: 20050211
  Serious: Yes (Hospitalization)
  Sender: FDA-Public Use
  Company Number: TR-JNJFOC-20040904269

PATIENT
  Age: 37 Year
  Sex: Male
  Weight: 74 kg

DRUGS (3)
  1. RISPERDAL [Suspect]
     Route: 049
  2. RISPERDAL [Suspect]
     Indication: BIPOLAR DISORDER
     Dosage: 2-6 MG/DAY (WHEN NECESSARY)
     Route: 049
  3. VALPROATE SODIUM [Concomitant]
     Indication: BIPOLAR DISORDER
     Dosage: TAKEN FOR THE LAST 2 WEEKS WITH RISPERDAL 5 MG/DAY
     Dates: start: 20040801

REACTIONS (5)
  - DISTURBANCE IN ATTENTION [None]
  - DYSPHAGIA [None]
  - MUTISM [None]
  - PYREXIA [None]
  - SPEECH DISORDER [None]
